FAERS Safety Report 6657963-3 (Version None)
Quarter: 2010Q1

REPORT INFORMATION
  Report Type: 
  Country: None (occurrence: None)
  Receive Date: 20100326
  Receipt Date: 20100316
  Transmission Date: 20100710
  Serious: Yes (Other)
  Sender: FDA-Public Use
  Company Number: DSA_42268_2009

PATIENT
  Sex: Female

DRUGS (14)
  1. CARDIZEM [Suspect]
     Indication: DRUG USE FOR UNKNOWN INDICATION
     Dosage: (240 MG QD ORAL)
     Dates: start: 20091014
  2. MULTAQ [Suspect]
     Indication: ATRIAL FIBRILLATION
     Dosage: (400 MG BID ORAL)
     Route: 048
     Dates: start: 20091014
  3. COREG [Suspect]
     Indication: DRUG USE FOR UNKNOWN INDICATION
     Dosage: (6.25 MG BID ORAL)
     Route: 048
     Dates: start: 20091014
  4. BENICAR [Suspect]
     Indication: DRUG USE FOR UNKNOWN INDICATION
     Dosage: (20 MG QD ORAL)
     Dates: start: 20091014
  5. MAG-OX [Concomitant]
  6. GLUCOSAMINE [Concomitant]
  7. CRESTOR /01588602/ [Concomitant]
  8. ACTOS [Concomitant]
  9. INSULIN [Concomitant]
  10. COENZYME Q10 /00517201/ [Concomitant]
  11. MAXZIDE [Concomitant]
  12. COUMADIN [Concomitant]
  13. ASPIRIN [Concomitant]
  14. GLYBURIDE [Concomitant]

REACTIONS (13)
  - BLOOD POTASSIUM DECREASED [None]
  - DIARRHOEA [None]
  - DYSPNOEA [None]
  - ECONOMIC PROBLEM [None]
  - FATIGUE [None]
  - FEELING ABNORMAL [None]
  - HEART RATE DECREASED [None]
  - INSOMNIA [None]
  - MALAISE [None]
  - OEDEMA PERIPHERAL [None]
  - RHINORRHOEA [None]
  - WEIGHT INCREASED [None]
  - WHEEZING [None]
